FAERS Safety Report 9012333 (Version 1)
Quarter: 2012Q4

REPORT INFORMATION
  Report Type: Spontaneous
  Country: DK (occurrence: None)
  Receive Date: 20121231
  Receipt Date: 20121231
  Transmission Date: 20130627
  Serious: No
  Sender: FDA-Public Use
  Company Number: 2012MA014293

PATIENT
  Age: 52 Year
  Sex: Male

DRUGS (4)
  1. FEVERALL (ACETAMINOPHEN RECTAL SUPPOSITORIES) 650 MG (ALPHARMA) PARACETAMOL) [Suspect]
  2. PEGINTERFERON ALFA-2B (PEGINTERFERON ALFA-2B) [Suspect]
     Indication: HEPATITIS C
     Route: 058
     Dates: start: 20120724
  3. TELAPREVIR (NO PREF. NAME) [Suspect]
     Indication: HEPATITIS C
     Dosage: ; PO
     Route: 048
     Dates: start: 20120724
  4. RIBAVIRIN (RIBAVIRIN) [Suspect]
     Indication: HEPATITIS C
     Dosage: ; PO
     Route: 048
     Dates: start: 20120724

REACTIONS (4)
  - Iron deficiency anaemia [None]
  - Depressed mood [None]
  - Pruritus [None]
  - Nausea [None]
